FAERS Safety Report 6076741-X (Version None)
Quarter: 2009Q1

REPORT INFORMATION
  Report Type: 
  Country: None (occurrence: None)
  Receive Date: 20090213
  Receipt Date: 20090204
  Transmission Date: 20090719
  Serious: Yes (Other)
  Sender: FDA-Public Use
  Company Number: US-JNJFOC-20081005495

PATIENT
  Sex: Male
  Weight: 95.71 kg

DRUGS (8)
  1. REMICADE [Suspect]
     Route: 042
  2. REMICADE [Suspect]
     Indication: PSORIATIC ARTHROPATHY
     Route: 042
  3. TRAMADOL [Concomitant]
  4. HYDROCODONE BITARTRATE [Concomitant]
  5. PREDNISONE [Concomitant]
  6. FOLIC ACID [Concomitant]
  7. CELEXA [Concomitant]
  8. CLONOPIN [Concomitant]

REACTIONS (7)
  - HAEMATURIA [None]
  - NIGHT SWEATS [None]
  - PROTEIN URINE PRESENT [None]
  - PYREXIA [None]
  - SKIN ODOUR ABNORMAL [None]
  - URTICARIA [None]
  - VOMITING [None]
